FAERS Safety Report 24387762 (Version 2)
Quarter: 2024Q4

REPORT INFORMATION
  Report Type: Spontaneous
  Country: US (occurrence: US)
  Receive Date: 20241002
  Receipt Date: 20241231
  Transmission Date: 20250114
  Serious: No
  Sender: GERON CORP
  Company Number: US-GERON-INTAKE-US-2003-2024

PATIENT
  Age: 89 Year
  Sex: Female

DRUGS (1)
  1. RYTELO [Suspect]
     Active Substance: IMETELSTAT SODIUM
     Indication: Product used for unknown indication
     Dosage: UNK UNK, UNK
     Route: 065
     Dates: start: 2024

REACTIONS (2)
  - Peripheral swelling [Recovered/Resolved]
  - Fall [Unknown]

NARRATIVE: CASE EVENT DATE: 20240101
